FAERS Safety Report 9211361 (Version 1)
Quarter: 2013Q2

REPORT INFORMATION
  Report Type: Spontaneous
  Country: US (occurrence: US)
  Receive Date: 20130404
  Receipt Date: 20130404
  Transmission Date: 20140414
  Serious: No
  Sender: FDA-Public Use
  Company Number: US-AMGEN-USASP2013016892

PATIENT
  Age: 40 Year
  Sex: Male

DRUGS (1)
  1. ENBREL [Suspect]
     Indication: PSORIASIS
     Dosage: 50 MG, QWK
     Dates: start: 20120701

REACTIONS (4)
  - Folliculitis [Not Recovered/Not Resolved]
  - Wound [Not Recovered/Not Resolved]
  - Scab [Not Recovered/Not Resolved]
  - Injection site swelling [Not Recovered/Not Resolved]
